FAERS Safety Report 9697889 (Version 2)
Quarter: 2013Q4

REPORT INFORMATION
  Report Type: Spontaneous
  Country: DK (occurrence: DK)
  Receive Date: 20131120
  Receipt Date: 20131120
  Transmission Date: 20140711
  Serious: Yes (Life-Threatening)
  Sender: FDA-Public Use
  Company Number: DK-NOVOPROD-392356

PATIENT
  Age: 10 Year
  Sex: Male
  Weight: 30.7 kg

DRUGS (1)
  1. NORDITROPIN SIMPLEXX [Suspect]
     Indication: GROWTH RETARDATION
     Dosage: 1 - 1,2 MG DAILY
     Route: 058
     Dates: start: 2004, end: 2010

REACTIONS (4)
  - Hepatic cirrhosis [Not Recovered/Not Resolved]
  - Splenomegaly [Not Recovered/Not Resolved]
  - Alanine aminotransferase increased [Not Recovered/Not Resolved]
  - Varices oesophageal [Not Recovered/Not Resolved]
